FAERS Safety Report 11499232 (Version 2)
Quarter: 2015Q4

REPORT INFORMATION
  Report Type: Spontaneous
  Country: US (occurrence: US)
  Receive Date: 20150913
  Receipt Date: 20151106
  Transmission Date: 20160304
  Serious: No
  Sender: FDA-Public Use
  Company Number: US-TEVA-592963USA

PATIENT
  Age: 74 Year
  Sex: Female
  Weight: 77.63 kg

DRUGS (3)
  1. CARBIDOPA AND LEVODOPA [Suspect]
     Active Substance: CARBIDOPA\LEVODOPA
     Route: 065
  2. ALEVE [Concomitant]
     Active Substance: NAPROXEN SODIUM
     Indication: PAIN
  3. AZILECT [Suspect]
     Active Substance: RASAGILINE MESYLATE
     Indication: PARKINSON^S DISEASE
     Route: 065
     Dates: start: 20150811, end: 20150908

REACTIONS (6)
  - Fall [Unknown]
  - Pain [Unknown]
  - Impaired driving ability [Unknown]
  - Feeling abnormal [Recovered/Resolved]
  - Renal pain [Unknown]
  - Urinary tract infection [Unknown]

NARRATIVE: CASE EVENT DATE: 201508
